FAERS Safety Report 7785393-X (Version None)
Quarter: 2011Q3

REPORT INFORMATION
  Report Type: 
  Country: None (occurrence: None)
  Receive Date: 20110929
  Receipt Date: 20110901
  Transmission Date: 20111222
  Serious: No
  Sender: FDA-Public Use
  Company Number: BR-JNJFOC-20110910225

PATIENT
  Sex: Male
  Weight: 35 kg

DRUGS (3)
  1. ONDANSETRON [Concomitant]
     Route: 048
  2. SULFAMETHOXAZOLE AND TRIMETHOPRIM [Concomitant]
     Route: 048
     Dates: start: 20110224
  3. DURAGESIC-100 [Suspect]
     Indication: PRODUCT USED FOR UNKNOWN INDICATION
     Route: 062

REACTIONS (4)
  - HEADACHE [None]
  - NAUSEA [None]
  - DIZZINESS [None]
  - OFF LABEL USE [None]
